FAERS Safety Report 9668248 (Version 2)
Quarter: 2013Q4

REPORT INFORMATION
  Report Type: Report from Study
  Country: JP (occurrence: JP)
  Receive Date: 20131104
  Receipt Date: 20131217
  Transmission Date: 20140711
  Serious: Yes (Hospitalization, Other)
  Sender: FDA-Public Use
  Company Number: JP-TAKEDA-2013TJP002413

PATIENT
  Age: 70 Year
  Sex: Female
  Weight: 59 kg

DRUGS (10)
  1. LANSOPRAZOLE [Suspect]
     Indication: PROPHYLAXIS AGAINST GASTROINTESTINAL ULCER
     Dosage: 15 MG, QD
     Route: 048
     Dates: start: 20120924
  2. BLOPRESS [Concomitant]
     Dosage: 4 MG,1 DAYS
     Route: 048
     Dates: start: 20120924
  3. NESINA [Concomitant]
     Indication: DIABETES MELLITUS
     Dosage: 6.25 MG, QD
     Route: 048
     Dates: start: 20130527
  4. BAYASPIRIN [Concomitant]
     Indication: THROMBOSIS PROPHYLAXIS
     Dosage: 100 MG,1 DAYS
     Route: 048
     Dates: start: 20120924
  5. PLAVIX [Concomitant]
     Indication: MYOCARDIAL INFARCTION
     Dosage: 75 MG,1 DAYS
     Route: 048
     Dates: start: 20120924
  6. SIGMART [Concomitant]
     Dosage: 15 MG, 1 DAYS
     Route: 048
     Dates: start: 20120924
  7. WARFARIN [Concomitant]
     Indication: MYOCARDIAL INFARCTION
     Dosage: 1 MG,1 DAYS
     Route: 048
     Dates: start: 20120924
  8. RIMATIL [Concomitant]
     Indication: RHEUMATIC DISORDER
     Dosage: 300 MG, 1 DAYS
     Route: 048
     Dates: start: 20120926
  9. EXFORGE [Concomitant]
     Indication: HYPERTENSION
     Dosage: 1 DF,1 DAYS
     Route: 048
     Dates: start: 20121122
  10. CRESTOR [Concomitant]
     Indication: DYSLIPIDAEMIA
     Dosage: 2.5 MG,1 DAYS
     Route: 048
     Dates: start: 20130722

REACTIONS (1)
  - Myocardial infarction [Recovering/Resolving]
